FAERS Safety Report 18353447 (Version 2)
Quarter: 2020Q4

REPORT INFORMATION
  Report Type: Report from Study
  Country: None (occurrence: CA)
  Receive Date: 20201007
  Receipt Date: 20201027
  Transmission Date: 20210114
  Serious: Yes (Hospitalization)
  Sender: FDA-Public Use
  Company Number: CA-ABBVIE-20K-028-3595763-00

PATIENT
  Age: 37 Year
  Sex: Male

DRUGS (1)
  1. HUMIRA [Suspect]
     Active Substance: ADALIMUMAB
     Indication: CROHN^S DISEASE
     Route: 058
     Dates: start: 20160112, end: 202009

REACTIONS (4)
  - Sputum discoloured [Not Recovered/Not Resolved]
  - Haemoptysis [Unknown]
  - Illness [Unknown]
  - Productive cough [Unknown]

NARRATIVE: CASE EVENT DATE: 202009
